FAERS Safety Report 11082223 (Version 9)
Quarter: 2015Q4

REPORT INFORMATION
  Report Type: Report from Study
  Country: US (occurrence: US)
  Receive Date: 20150501
  Receipt Date: 20151002
  Transmission Date: 20160304
  Serious: Yes (Death, Hospitalization, Other)
  Sender: FDA-Public Use
  Company Number: US-ACTELION-A-US2015-117135

PATIENT
  Age: 50 Year
  Sex: Male

DRUGS (5)
  1. WARFARIN [Concomitant]
     Active Substance: WARFARIN
  2. MACITENTAN [Suspect]
     Active Substance: MACITENTAN
     Indication: PULMONARY ARTERIAL HYPERTENSION
     Dosage: 10 MG, QD
     Route: 048
     Dates: start: 20150413, end: 20150920
  3. VELETRI [Suspect]
     Active Substance: EPOPROSTENOL
     Indication: PULMONARY ARTERIAL HYPERTENSION
     Dosage: 24 NG/KG, PER MIN
     Route: 042
     Dates: start: 20150106, end: 20150920
  4. VELETRI [Suspect]
     Active Substance: EPOPROSTENOL
     Dosage: 24 NG/KG, PER MIN
     Route: 042
     Dates: start: 20150106
  5. RIOCIGUAT [Concomitant]
     Active Substance: RIOCIGUAT

REACTIONS (12)
  - Failure to thrive [Unknown]
  - Pathological fracture [Unknown]
  - Hypercalcaemia [Unknown]
  - Mental status changes [Unknown]
  - Metastases to spine [Unknown]
  - Anaemia [Unknown]
  - Sepsis [Unknown]
  - Weight decreased [Unknown]
  - Plasma cell myeloma [Fatal]
  - Pain in extremity [Unknown]
  - Neck surgery [Unknown]
  - Arthralgia [Unknown]

NARRATIVE: CASE EVENT DATE: 201504
